FAERS Safety Report 7893675-6 (Version None)
Quarter: 2011Q4

REPORT INFORMATION
  Report Type: 
  Country: None (occurrence: None)
  Receive Date: 20111104
  Receipt Date: 20111028
  Transmission Date: 20120403
  Serious: Yes (Other)
  Sender: FDA-Public Use
  Company Number: AU-JNJFOC-20111012960

PATIENT
  Age: 65 Year
  Sex: Female

DRUGS (1)
  1. DURAGESIC-100 [Suspect]
     Indication: MENINGOCOCCAL INFECTION
     Route: 062

REACTIONS (6)
  - MALAISE [None]
  - HEADACHE [None]
  - LIVER OPERATION [None]
  - SYNCOPE [None]
  - WITHDRAWAL SYNDROME [None]
  - MUSCLE STRAIN [None]
